FAERS Safety Report 18648825 (Version 1)
Quarter: 2020Q4

REPORT INFORMATION
  Report Type: Spontaneous
  Country: GB (occurrence: GB)
  Receive Date: 20201222
  Receipt Date: 20201222
  Transmission Date: 20210114
  Serious: Yes (Other)
  Sender: FDA-Public Use
  Company Number: GB-TEVA-2020-GB-1859636

PATIENT
  Age: 78 Year
  Sex: Female
  Weight: 58 kg

DRUGS (12)
  1. ADCAL [Concomitant]
     Dosage: 2 DOSAGE FORMS
     Dates: start: 20200210
  2. FLUTICASONE. [Concomitant]
     Active Substance: FLUTICASONE
     Dosage: PUFFS, 4 DOSAGE FORMS
     Dates: start: 20190723
  3. PIROXICAM. [Concomitant]
     Active Substance: PIROXICAM
     Dosage: APPLY TWO TO THREE TIMES DAILY
     Dates: start: 20190723
  4. LOSARTAN. [Concomitant]
     Active Substance: LOSARTAN
     Dosage: 1 DOSAGE FORMS
     Dates: start: 20190723
  5. TOLTERODINE [Suspect]
     Active Substance: TOLTERODINE
     Dosage: 4 MG
     Dates: start: 20200828
  6. COCODAMOL [Concomitant]
     Active Substance: ACETAMINOPHEN\CODEINE PHOSPHATE
     Dosage: TAKE 1 OR 2 4 TIMES/DAY
     Dates: start: 20190918
  7. SALBUTAMOL [Concomitant]
     Active Substance: ALBUTEROL
     Dosage: AS DIRECTED
     Dates: start: 20190723
  8. ATORVASTATIN [Concomitant]
     Active Substance: ATORVASTATIN
     Dosage: 1 DOSAGE FORMS
     Dates: start: 20190723
  9. AMITRIPTYLINE HYDROCHLORIDE. [Concomitant]
     Active Substance: AMITRIPTYLINE HYDROCHLORIDE
     Dosage: 1-2 IN AN EVENING
     Dates: start: 20190723
  10. AMLODIPINE [Concomitant]
     Active Substance: AMLODIPINE BESYLATE
     Dosage: 1 DOSAGE FORMS
     Dates: start: 20190723
  11. APIXABAN [Concomitant]
     Active Substance: APIXABAN
     Dosage: FOR 5 WEEKS THEN STOP, 2 DOSAGE FORMS
     Dates: start: 20201015, end: 20201119
  12. BECLOMETASONE [Concomitant]
     Active Substance: BECLOMETHASONE DIPROPIONATE
     Dosage: PUFFS, 4 DOSAGE FORMS
     Dates: start: 20190723

REACTIONS (1)
  - Pruritus [Unknown]

NARRATIVE: CASE EVENT DATE: 20201123
